FAERS Safety Report 6578760-3 (Version None)
Quarter: 2010Q1

REPORT INFORMATION
  Report Type: 
  Country: None (occurrence: None)
  Receive Date: 20100202
  Receipt Date: 20100122
  Transmission Date: 20100710
  Serious: Yes (Other)
  Sender: FDA-Public Use
  Company Number: 2010US000172

PATIENT
  Age: 54 Year
  Sex: Male

DRUGS (3)
  1. AMBISOME [Suspect]
     Indication: BRONCHOPULMONARY ASPERGILLOSIS
  2. MYCAMINE [Concomitant]
  3. VORICONAZOLE [Concomitant]

REACTIONS (1)
  - PANCREATITIS ACUTE [None]
